FAERS Safety Report 6523654-2 (Version None)
Quarter: 2009Q4

REPORT INFORMATION
  Report Type: 
  Country: None (occurrence: None)
  Receive Date: 20091231
  Receipt Date: 20091222
  Transmission Date: 20100525
  Serious: Yes (Hospitalization, Disabling, Other)
  Sender: FDA-Public Use
  Company Number: US-JNJFOC-20091006970

PATIENT
  Sex: Female
  Weight: 70.76 kg

DRUGS (2)
  1. REMICADE [Suspect]
     Dosage: DOSE OF ^4 VIALS^
     Route: 042
     Dates: end: 20090914
  2. REMICADE [Suspect]
     Indication: RHEUMATOID ARTHRITIS
     Dosage: DOSE OF ^4 VIALS^
     Route: 042
     Dates: end: 20090914

REACTIONS (5)
  - CAROTID ARTERY OCCLUSION [None]
  - CAROTID ARTERY STENOSIS [None]
  - CEREBROVASCULAR ACCIDENT [None]
  - IIIRD NERVE PARALYSIS [None]
  - TRANSIENT ISCHAEMIC ATTACK [None]
